FAERS Safety Report 5774735-2 (Version None)
Quarter: 2008Q2

REPORT INFORMATION
  Report Type: 
  Country: None (occurrence: None)
  Receive Date: 20080616
  Receipt Date: 20080616
  Transmission Date: 20081010
  Serious: Yes (Other)
  Sender: FDA-Public Use
  Company Number: None

PATIENT
  Sex: Female
  Weight: 74.8435 kg

DRUGS (1)
  1. PLAVIX [Suspect]
     Dosage: 75 MG TABLET 1 TABLET DAILY
     Dates: start: 20071116, end: 20080320

REACTIONS (3)
  - DYSGEUSIA [None]
  - TRANSIENT ISCHAEMIC ATTACK [None]
  - WEIGHT DECREASED [None]
